FAERS Safety Report 19635246 (Version 3)
Quarter: 2021Q4

REPORT INFORMATION
  Report Type: Spontaneous
  Country: EG (occurrence: EG)
  Receive Date: 20210729
  Receipt Date: 20211217
  Transmission Date: 20220303
  Serious: Yes (Other)
  Sender: FDA-Public Use
  Company Number: EG-PFIZER INC-2020469023

PATIENT
  Age: 69 Year
  Sex: Female

DRUGS (2)
  1. IBRANCE [Suspect]
     Active Substance: PALBOCICLIB
     Indication: Breast cancer metastatic
     Dosage: 100 MG, 1X/DAY (FOR 3 WEEKS ON THEN 1 WEEK OFF)
     Route: 048
     Dates: start: 202009, end: 202012
  2. IBRANCE [Suspect]
     Active Substance: PALBOCICLIB
     Dosage: 75 MG, CYCLIC (ONCE DAILY FOR 3 WEEKS ON THEN ONE WEEK OFF)
     Route: 048

REACTIONS (2)
  - Renal impairment [Unknown]
  - Anaemia [Unknown]

NARRATIVE: CASE EVENT DATE: 20210107
